FAERS Safety Report 6758325-0 (Version None)
Quarter: 2010Q2

REPORT INFORMATION
  Report Type: 
  Country: None (occurrence: None)
  Receive Date: 20100607
  Receipt Date: 20100527
  Transmission Date: 20101027
  Serious: Yes (Other)
  Sender: FDA-Public Use
  Company Number: CA-JNJFOC-20100600266

PATIENT
  Sex: Female
  Weight: 54 kg

DRUGS (9)
  1. REMICADE [Suspect]
     Indication: CROHN'S DISEASE
     Route: 042
  2. AZATHIOPRINE [Concomitant]
  3. RAMIPRIL [Concomitant]
  4. TRAZODONE HCL [Concomitant]
  5. MIRTAZAPINE [Concomitant]
  6. LORAZEPAM [Concomitant]
  7. WELLBUTRIN [Concomitant]
  8. VITAMIN TAB [Concomitant]
  9. TYLENOL W/ CODEINE NO. 3 [Concomitant]

REACTIONS (1)
  - SKIN CANCER [None]
